FAERS Safety Report 17970946 (Version 1)
Quarter: 2020Q3

REPORT INFORMATION
  Report Type: Report from Study
  Country: US (occurrence: US)
  Receive Date: 20200701
  Receipt Date: 20200701
  Transmission Date: 20201103
  Serious: Yes (Other)
  Sender: FDA-Public Use
  Company Number: US-ROCHE-2562547

PATIENT
  Age: 59 Year
  Sex: Female
  Weight: 63 kg

DRUGS (5)
  1. ATEZOLIZUMAB. [Suspect]
     Active Substance: ATEZOLIZUMAB
     Indication: MESOTHELIOMA MALIGNANT
     Dosage: MOST RECENT DOSE OF ATEZOLIZUMAB 1200 MG PRIOR TO EVENT ONSET: 28/JAN/2019
     Route: 042
     Dates: start: 20181214, end: 20191204
  2. FUROSEMIDE. [Concomitant]
     Active Substance: FUROSEMIDE
  3. PEMETREXED. [Suspect]
     Active Substance: PEMETREXED
     Indication: MESOTHELIOMA MALIGNANT
     Dosage: MOST RECENT DOSE OF PEMETREXED 840 MG PRIOR TO EVENT ONSET: 28/JAN/2019
     Route: 042
     Dates: start: 20181214, end: 20190219
  4. POTASSIUM [Concomitant]
     Active Substance: POTASSIUM
  5. CISPLATIN. [Suspect]
     Active Substance: CISPLATIN
     Indication: MESOTHELIOMA MALIGNANT
     Dosage: MOST RECENT DOSE OF CISPLATIN 126 MG PRIOR TO EVENT ONSET: 28/JAN/2019
     Route: 042
     Dates: start: 20181214, end: 20190219

REACTIONS (2)
  - Anaemia [Recovered/Resolved]
  - Hypokalaemia [Recovered/Resolved]

NARRATIVE: CASE EVENT DATE: 20190217
